FAERS Safety Report 18670134 (Version 3)
Quarter: 2021Q2

REPORT INFORMATION
  Report Type: Spontaneous
  Country: IN (occurrence: IN)
  Receive Date: 20201228
  Receipt Date: 20210630
  Transmission Date: 20210717
  Serious: Yes (Other)
  Sender: FDA-Public Use
  Company Number: IN-PFIZER INC-2020498796

PATIENT
  Age: 8 Year
  Sex: Female

DRUGS (1)
  1. METHYLPREDNISOLONE SODIUM SUCCINATE. [Suspect]
     Active Substance: METHYLPREDNISOLONE SODIUM SUCCINATE
     Indication: AUTOIMMUNE HAEMOLYTIC ANAEMIA
     Dosage: 8 MG/KG, DAILY
     Route: 042

REACTIONS (2)
  - Bradycardia [Recovered/Resolved]
  - Hypokalaemia [Recovered/Resolved]
